FAERS Safety Report 8777708 (Version 4)
Quarter: 2013Q2

REPORT INFORMATION
  Report Type: Spontaneous
  Country: US (occurrence: US)
  Receive Date: 20120910
  Receipt Date: 20130614
  Transmission Date: 20140414
  Serious: Yes (Other)
  Sender: FDA-Public Use
  Company Number: US-GILEAD-2012-0060471

PATIENT
  Age: 62 Year
  Sex: Male

DRUGS (23)
  1. LETAIRIS [Suspect]
     Indication: PULMONARY ARTERIAL HYPERTENSION
     Dosage: 5 MG, UNK
     Route: 048
     Dates: start: 20120814
  2. LETAIRIS [Suspect]
     Indication: CHRONIC OBSTRUCTIVE PULMONARY DISEASE
  3. REVATIO [Suspect]
     Indication: PULMONARY HYPERTENSION
     Dosage: 20 MG, TID
     Route: 048
     Dates: start: 2011, end: 201208
  4. METFORMIN [Concomitant]
     Dosage: 500 MG, BID
  5. LORATADINE [Concomitant]
     Dosage: 10 MG, QD
  6. GLIMEPIRIDE [Concomitant]
     Indication: DIABETES MELLITUS
     Dosage: 10 MG, QD
  7. FAMOTIDINE [Concomitant]
     Dosage: 20 MG, BID
  8. ENALAPRIL [Concomitant]
     Dosage: 20 MG, UNK
  9. SERTRALINE [Concomitant]
     Dosage: UNK
  10. ALPRAZOLAM [Concomitant]
     Dosage: 1 MG, TID
  11. TRAMADOL [Concomitant]
     Indication: SPINAL CORD COMPRESSION
     Dosage: 50 MG, PRN
  12. TRAMADOL [Concomitant]
     Indication: INTERVERTEBRAL DISC PROTRUSION
  13. FLUTICASONE PROPIONATE W/SALMETEROL [Concomitant]
  14. TIOTROPIUM [Concomitant]
  15. ALBUTEROL                          /00139501/ [Concomitant]
  16. OXYGEN [Concomitant]
  17. GLUCOPHAGE [Concomitant]
  18. TESTOSTERONE [Concomitant]
  19. VASOTEC                            /00574902/ [Concomitant]
  20. CLARITIN                           /00413701/ [Concomitant]
  21. ACTOS [Concomitant]
  22. PEPCID                             /00706001/ [Concomitant]
  23. ADVAIR [Concomitant]

REACTIONS (8)
  - Compression fracture [Unknown]
  - Blood pressure decreased [Unknown]
  - Pain [Unknown]
  - Back pain [Unknown]
  - Intervertebral disc protrusion [Unknown]
  - Oxygen saturation decreased [Unknown]
  - Dyspnoea [Unknown]
  - Dyspnoea [Unknown]
